FAERS Safety Report 7457520-5 (Version None)
Quarter: 2011Q2

REPORT INFORMATION
  Report Type: 
  Country: None (occurrence: None)
  Receive Date: 20110504
  Receipt Date: 20110428
  Transmission Date: 20111010
  Serious: Yes (Other)
  Sender: FDA-Public Use
  Company Number: NL-BRISTOL-MYERS SQUIBB COMPANY-15712524

PATIENT
  Age: 56 Year
  Sex: Female

DRUGS (4)
  1. ORENCIA [Suspect]
     Dosage: LAST INFUSION BEGINNING APRIL 2011
     Dates: start: 20110101
  2. SULFASALAZINE [Suspect]
  3. METHOTREXATE [Suspect]
     Dates: start: 20080101
  4. PREDNISONE [Suspect]

REACTIONS (2)
  - TINNITUS [None]
  - DEAFNESS [None]
